FAERS Safety Report 11993431 (Version 1)
Quarter: 2016Q1

REPORT INFORMATION
  Report Type: Spontaneous
  Country: US (occurrence: US)
  Receive Date: 20160203
  Receipt Date: 20160203
  Transmission Date: 20160526
  Serious: Yes (Hospitalization, Other)
  Sender: FDA-Public Use
  Company Number: US-ACTAVIS-2015-06373

PATIENT
  Age: 75 Year
  Sex: Female

DRUGS (9)
  1. SORIATANE [Suspect]
     Active Substance: ACITRETIN
     Dosage: 25 MG, UNKNOWN
     Route: 048
  2. ASPIRIN. [Concomitant]
     Active Substance: ASPIRIN
     Indication: PRODUCT USED FOR UNKNOWN INDICATION
     Dosage: UNK
     Route: 065
  3. POTASSIUM CHLORIDE. [Concomitant]
     Active Substance: POTASSIUM CHLORIDE
     Indication: PRODUCT USED FOR UNKNOWN INDICATION
     Dosage: UNK
     Route: 065
  4. BABY ASPIRIN [Concomitant]
     Active Substance: ASPIRIN
     Indication: PRODUCT USED FOR UNKNOWN INDICATION
     Dosage: UNK
     Route: 065
  5. LISINOPRIL. [Concomitant]
     Active Substance: LISINOPRIL
     Indication: PRODUCT USED FOR UNKNOWN INDICATION
     Dosage: UNK
     Route: 065
  6. SORIATANE [Suspect]
     Active Substance: ACITRETIN
     Indication: KERATOSIS FOLLICULAR
     Dosage: 25 MG, DAILY
     Route: 048
  7. CIPROFLOXACIN. [Concomitant]
     Active Substance: CIPROFLOXACIN
     Indication: PRODUCT USED FOR UNKNOWN INDICATION
     Dosage: UNK
     Route: 065
  8. ROSUVASTATIN [Concomitant]
     Active Substance: ROSUVASTATIN
     Indication: PRODUCT USED FOR UNKNOWN INDICATION
     Dosage: UNK
     Route: 065
  9. FUROSEMIDE. [Concomitant]
     Active Substance: FUROSEMIDE
     Indication: PRODUCT USED FOR UNKNOWN INDICATION
     Dosage: UNK
     Route: 065

REACTIONS (14)
  - Colon neoplasm [Unknown]
  - Polyp [Unknown]
  - Colon operation [Unknown]
  - Blindness unilateral [Unknown]
  - Hip fracture [Recovering/Resolving]
  - Ear infection [Recovering/Resolving]
  - Lip dry [Unknown]
  - Nodule [Not Recovered/Not Resolved]
  - Drug dose omission [Unknown]
  - Intentional product use issue [Not Recovered/Not Resolved]
  - Rehabilitation therapy [Unknown]
  - Thrombosis [Recovering/Resolving]
  - Eye disorder [Unknown]
  - Product use issue [Not Recovered/Not Resolved]

NARRATIVE: CASE EVENT DATE: 201502
